FAERS Safety Report 21218888 (Version 2)
Quarter: 2022Q3

REPORT INFORMATION
  Report Type: Spontaneous
  Country: US (occurrence: US)
  Receive Date: 20220816
  Receipt Date: 20220906
  Transmission Date: 20221027
  Serious: Yes (Death, Life-Threatening, Hospitalization)
  Sender: FDA-Public Use
  Company Number: US-DSJP-DSU-2022-128584

PATIENT
  Age: 69 Year
  Sex: Female

DRUGS (1)
  1. ENHERTU [Suspect]
     Active Substance: FAM-TRASTUZUMAB DERUXTECAN-NXKI
     Indication: Breast cancer
     Dosage: 5.4 MG/KG, ONCE EVERY 3 WK
     Route: 042
     Dates: start: 20220718

REACTIONS (6)
  - Pneumonitis [Fatal]
  - Interstitial lung disease [Not Recovered/Not Resolved]
  - Pulmonary thrombosis [Unknown]
  - Hypersomnia [Unknown]
  - Toxicity to various agents [Unknown]
  - Dysstasia [Unknown]

NARRATIVE: CASE EVENT DATE: 20220701
